FAERS Safety Report 23728969 (Version 1)
Quarter: 2024Q2

REPORT INFORMATION
  Report Type: Report from Study
  Country: US (occurrence: None)
  Receive Date: 20240410
  Receipt Date: 20240410
  Transmission Date: 20240715
  Serious: Yes (Hospitalization, Other)
  Sender: FDA-Public Use
  Company Number: 2024A080299

PATIENT

DRUGS (2)
  1. SYMBICORT [Suspect]
     Active Substance: BUDESONIDE\FORMOTEROL FUMARATE DIHYDRATE
     Dosage: UNKNOWN UNKNOWN
     Route: 055
  2. BREZTRI [Suspect]
     Active Substance: BUDESONIDE\FORMOTEROL\GLYCOPYRROLATE
     Route: 055

REACTIONS (8)
  - Pulmonary oedema [Unknown]
  - Dyspnoea [Unknown]
  - Road traffic accident [Unknown]
  - Product substitution issue [Unknown]
  - Drug effect less than expected [Unknown]
  - Thinking abnormal [Unknown]
  - Asthenia [Unknown]
  - Headache [Unknown]
